FAERS Safety Report 6849070-1 (Version None)
Quarter: 2010Q3

REPORT INFORMATION
  Report Type: 
  Country: None (occurrence: None)
  Receive Date: 20100716
  Receipt Date: 20080625
  Transmission Date: 20110219
  Serious: No
  Sender: FDA-Public Use
  Company Number: US-PFIZER INC-2007081460

PATIENT
  Sex: Male
  Weight: 72.727 kg

DRUGS (3)
  1. CHANTIX [Suspect]
     Indication: SMOKING CESSATION THERAPY
     Route: 048
  2. ACETYLSALICYLIC ACID [Concomitant]
  3. OMACOR [Concomitant]

REACTIONS (1)
  - IRRITABILITY [None]
